FAERS Safety Report 9338561 (Version 1)
Quarter: 2013Q2

REPORT INFORMATION
  Report Type: Spontaneous
  Country: US (occurrence: US)
  Receive Date: 20130610
  Receipt Date: 20130610
  Transmission Date: 20140414
  Serious: Yes (Death, Hospitalization)
  Sender: FDA-Public Use
  Company Number: US-JNJFOC-20130520285

PATIENT
  Sex: 0

DRUGS (2)
  1. NESIRITIDE [Suspect]
     Indication: CARDIAC FAILURE ACUTE
     Route: 042
  2. DIURETICS [Suspect]
     Indication: CARDIAC FAILURE ACUTE
     Route: 042

REACTIONS (3)
  - Hospitalisation [Unknown]
  - Hospitalisation [Unknown]
  - Death [Fatal]
